FAERS Safety Report 16791367 (Version 1)
Quarter: 2019Q3

REPORT INFORMATION
  Report Type: Spontaneous
  Country: US (occurrence: US)
  Receive Date: 20190910
  Receipt Date: 20190910
  Transmission Date: 20191005
  Serious: No
  Sender: FDA-Public Use
  Company Number: US-GALDERMA-US19044338

PATIENT
  Age: 52 Year
  Sex: Male

DRUGS (2)
  1. CETAPHIL PRO ECZEMA SOOTHING MOISTURIZER [Suspect]
     Active Substance: OATMEAL
     Indication: PSORIASIS
     Route: 061
     Dates: start: 20190708, end: 20190711
  2. CLOBETASOL PROPIONATE (CLOBETASOL PROPIONATE) LOTION [Suspect]
     Active Substance: CLOBETASOL PROPIONATE
     Indication: PSORIASIS
     Dosage: 0.05%
     Route: 061
     Dates: start: 2017

REACTIONS (3)
  - Skin exfoliation [Not Recovered/Not Resolved]
  - Off label use [Recovered/Resolved]
  - Intentional underdose [Recovered/Resolved]

NARRATIVE: CASE EVENT DATE: 2017
